FAERS Safety Report 8187462-1 (Version None)
Quarter: 2012Q1

REPORT INFORMATION
  Report Type: 
  Country: None (occurrence: None)
  Receive Date: 20120302
  Receipt Date: 20120215
  Transmission Date: 20120608
  Serious: Yes (Hospitalization)
  Sender: FDA-Public Use
  Company Number: DEP_00575_2012

PATIENT
  Age: 8 Year
  Sex: Male

DRUGS (2)
  1. GABAPENTIN [Suspect]
     Indication: NEURALGIA
     Dosage: (DF, TITRATED UPWARDS)
  2. GABAPENTIN [Suspect]
     Indication: OFF LABEL USE
     Dosage: (DF, TITRATED UPWARDS)

REACTIONS (3)
  - KIDNEY ENLARGEMENT [None]
  - DIALYSIS [None]
  - RENAL FAILURE ACUTE [None]
